FAERS Safety Report 20723758 (Version 1)
Quarter: 2022Q2

REPORT INFORMATION
  Report Type: Spontaneous
  Country: FR (occurrence: FR)
  Receive Date: 20220419
  Receipt Date: 20220419
  Transmission Date: 20220720
  Serious: Yes (Hospitalization)
  Sender: FDA-Public Use
  Company Number: FR-ALVOGEN-2022-ALVOGEN-119559

PATIENT
  Age: 79 Year
  Sex: Male

DRUGS (6)
  1. LISINOPRIL [Suspect]
     Active Substance: LISINOPRIL
     Indication: Anticoagulant therapy
     Route: 065
  2. AMLODIPINE BESYLATE [Suspect]
     Active Substance: AMLODIPINE BESYLATE
     Indication: Cardiovascular disorder
     Route: 065
     Dates: start: 1979
  3. TAFAMIDIS MEGLUMINE [Suspect]
     Active Substance: TAFAMIDIS MEGLUMINE
     Indication: Amyloidosis
     Route: 048
     Dates: start: 20190401, end: 20200110
  4. FLUINDIONE [Suspect]
     Active Substance: FLUINDIONE
     Indication: Cardiovascular disorder
     Dosage: DOSE LOWERED.
     Route: 065
  5. PRAVASTATIN SODIUM [Concomitant]
     Active Substance: PRAVASTATIN SODIUM
     Indication: Cardiovascular disorder
     Dates: start: 2012
  6. FUROSEMIDE [Concomitant]
     Active Substance: FUROSEMIDE
     Indication: Cardiovascular disorder
     Dates: start: 2012

REACTIONS (6)
  - Atrial fibrillation [Recovered/Resolved]
  - Skin injury [Recovered/Resolved]
  - Head injury [Recovered/Resolved]
  - Hypotension [Recovered/Resolved]
  - Arthralgia [Recovered/Resolved]
  - Gait disturbance [Recovered/Resolved]

NARRATIVE: CASE EVENT DATE: 20191101
